FAERS Safety Report 11150598 (Version 2)
Quarter: 2015Q3

REPORT INFORMATION
  Report Type: Report from Study
  Country: US (occurrence: US)
  Receive Date: 20150601
  Receipt Date: 20150929
  Transmission Date: 20151125
  Serious: Yes (Hospitalization)
  Sender: FDA-Public Use
  Company Number: US-AEGERION-AEGR001417

PATIENT

DRUGS (2)
  1. JUXTAPID [Suspect]
     Active Substance: LOMITAPIDE MESYLATE
     Indication: TYPE IIA HYPERLIPIDAEMIA
     Dosage: 20 MG, QD
     Route: 048
     Dates: start: 20130710, end: 201503
  2. JUXTAPID [Suspect]
     Active Substance: LOMITAPIDE MESYLATE
     Dosage: 20 MG, QD
     Route: 048
     Dates: start: 2015

REACTIONS (4)
  - Renal failure [Recovered/Resolved]
  - Abdominal discomfort [Not Recovered/Not Resolved]
  - Therapy cessation [Recovered/Resolved]
  - Injury [Unknown]

NARRATIVE: CASE EVENT DATE: 201503
